FAERS Safety Report 4307121-2 (Version None)
Quarter: 2004Q1

REPORT INFORMATION
  Report Type: 
  Country: None (occurrence: None)
  Receive Date: 20040225
  Receipt Date: 20040210
  Transmission Date: 20041129
  Serious: Yes (Hospitalization)
  Sender: FDA-Public Use
  Company Number: USA040259060

PATIENT
  Sex: Female

DRUGS (8)
  1. HUMULIN N [Suspect]
     Indication: DIABETES MELLITUS
     Dates: start: 19980101, end: 20030101
  2. HUMULIN R [Suspect]
     Indication: DIABETES MELLITUS
     Dates: start: 19980101, end: 20030101
  3. PREDNISONE [Concomitant]
  4. NEXIUM [Concomitant]
  5. BETAPACE [Concomitant]
  6. POTASSIUM [Concomitant]
  7. SLO-MAG (MAGNESIUM CHLORIDE ANHYDROUS) [Concomitant]
  8. SPIRONOLACTONE [Concomitant]

REACTIONS (3)
  - IMPLANTABLE DEFIBRILLATOR INSERTION [None]
  - LIVER DISORDER [None]
  - SARCOIDOSIS [None]
